FAERS Safety Report 4510834-0 (Version None)
Quarter: 2004Q4

REPORT INFORMATION
  Report Type: 
  Country: None (occurrence: None)
  Receive Date: 20041025
  Receipt Date: 20031219
  Transmission Date: 20050328
  Serious: Yes (Other)
  Sender: FDA-Public Use
  Company Number: NSADSS2003009149

PATIENT
  Age: 43 Year
  Sex: Female

DRUGS (9)
  1. REMICADE [Suspect]
     Indication: RHEUMATOID ARTHRITIS
     Dosage: 1 IN 1 AS NECESSARY, INTRAVENOUS DRIP
     Route: 041
     Dates: start: 20030114, end: 20030114
  2. METHOTREXATE [Concomitant]
  3. KETOPROFEN [Concomitant]
  4. ARAVA [Concomitant]
  5. ULTRAM [Concomitant]
  6. FOLIC ACID [Concomitant]
  7. PREMPRO 14/14 [Concomitant]
  8. ZOLOFT [Concomitant]
  9. TYLENOL [Concomitant]

REACTIONS (2)
  - CHEST PAIN [None]
  - DYSPNOEA [None]
